FAERS Safety Report 11208350 (Version 1)
Quarter: 2015Q2

REPORT INFORMATION
  Report Type: Report from Study
  Country: US (occurrence: US)
  Receive Date: 20150622
  Receipt Date: 20150622
  Transmission Date: 20150821
  Serious: No
  Sender: FDA-Public Use
  Company Number: US-ABBVIE-15P-163-1403115-00

PATIENT
  Sex: Male

DRUGS (2)
  1. VIEKIRA PAK [Suspect]
     Active Substance: DASABUVIR\OMBITASVIR\PARITAPREVIR\RITONAVIR
     Indication: HEPATITIS C
     Dosage: 2 PINK TABS QAM; 1 BEIGE TAB BID (AM/PM) WEEKLY PACK 28^S SHIPPED 22 MAY 2015
     Route: 048
     Dates: start: 201504
  2. RIBAVIRIN. [Suspect]
     Active Substance: RIBAVIRIN
     Indication: HEPATITIS C
     Route: 048

REACTIONS (1)
  - Rash [Unknown]
